FAERS Safety Report 7249143-8 (Version None)
Quarter: 2011Q1

REPORT INFORMATION
  Report Type: 
  Country: None (occurrence: None)
  Receive Date: 20110128
  Receipt Date: 20101110
  Transmission Date: 20110831
  Serious: Yes (Other)
  Sender: FDA-Public Use
  Company Number: US-BAYER-201026008NA

PATIENT
  Sex: Female
  Weight: 68 kg

DRUGS (3)
  1. FLEXERIL [Concomitant]
     Indication: HEADACHE
     Dosage: UNK
     Dates: start: 20070101
  2. YAZ [Suspect]
     Indication: CONTRACEPTION
     Dosage: UNK
     Route: 048
     Dates: start: 20061126, end: 20070612
  3. YASMIN [Suspect]
     Indication: CONTRACEPTION
     Dosage: UNK
     Route: 048
     Dates: start: 20031115, end: 20060910

REACTIONS (5)
  - HEADACHE [None]
  - CEREBROVASCULAR ACCIDENT [None]
  - BLINDNESS [None]
  - NAUSEA [None]
  - AMNESIA [None]
